FAERS Safety Report 8459531-X (Version None)
Quarter: 2012Q2

REPORT INFORMATION
  Report Type: 
  Country: None (occurrence: None)
  Receive Date: 20120622
  Receipt Date: 20120614
  Transmission Date: 20120825
  Serious: Yes (Hospitalization, Other)
  Sender: FDA-Public Use
  Company Number: US-JNJFOC-20120507768

PATIENT
  Age: 26 Year
  Sex: Male

DRUGS (1)
  1. INVEGA SUSTENNA [Suspect]
     Indication: SCHIZOPHRENIA
     Route: 030
     Dates: start: 20110801

REACTIONS (3)
  - SCHIZOPHRENIA [None]
  - HALLUCINATION, VISUAL [None]
  - THERAPEUTIC RESPONSE DECREASED [None]
